FAERS Safety Report 4471046-2 (Version None)
Quarter: 2004Q4

REPORT INFORMATION
  Report Type: 
  Country: None (occurrence: None)
  Receive Date: 20041011
  Receipt Date: 20041002
  Transmission Date: 20050328
  Serious: Yes (Disabling)
  Sender: FDA-Public Use
  Company Number: GB-GLAXOSMITHKLINE-B0346993A

PATIENT
  Age: 38 Year
  Sex: Male
  Weight: 79 kg

DRUGS (1)
  1. ZYBAN [Suspect]
     Indication: SMOKING CESSATION THERAPY
     Dosage: 150MG UNKNOWN
     Route: 048
     Dates: start: 20040820, end: 20040921

REACTIONS (2)
  - CHROMATURIA [None]
  - PRURITUS [None]
